FAERS Safety Report 15407306 (Version 1)
Quarter: 2018Q3

REPORT INFORMATION
  Report Type: Spontaneous
  Country: JP (occurrence: JP)
  Receive Date: 20180920
  Receipt Date: 20180920
  Transmission Date: 20181010
  Serious: Yes (Death, Life-Threatening, Hospitalization, Other)
  Sender: FDA-Public Use
  Company Number: JP-MYLANLABS-2018M1067774

PATIENT
  Age: 75 Year
  Sex: Female
  Weight: 52 kg

DRUGS (18)
  1. LASIX [Concomitant]
     Active Substance: FUROSEMIDE
     Indication: OEDEMA
     Dosage: ??
     Route: 065
     Dates: start: 20080714, end: 20100319
  2. TAKEPRON [Concomitant]
     Active Substance: LANSOPRAZOLE
     Indication: GASTRITIS PROPHYLAXIS
     Dosage: ??
     Route: 065
     Dates: start: 20070409, end: 20100319
  3. COVERSYL                           /00790702/ [Concomitant]
     Active Substance: PERINDOPRIL
     Indication: HYPERTENSION
     Dosage: ??
     Route: 065
     Dates: start: 20010319, end: 20100319
  4. FOLIAMIN [Concomitant]
     Active Substance: FOLIC ACID
     Indication: PRODUCT USED FOR UNKNOWN INDICATION
     Dosage: ??
     Route: 065
     Dates: start: 20051202, end: 20100319
  5. CELECOXIB. [Concomitant]
     Active Substance: CELECOXIB
     Indication: PRODUCT USED FOR UNKNOWN INDICATION
     Dosage: ??
     Route: 065
     Dates: start: 20080811, end: 20100319
  6. BAYASPIRIN [Concomitant]
     Active Substance: ASPIRIN
     Indication: DEEP VEIN THROMBOSIS
     Route: 065
  7. RISEDRONATE SODIUM HYDRATE [Concomitant]
     Active Substance: RISEDRONATE SODIUM
     Indication: PROPHYLAXIS
     Dosage: ??
     Route: 065
     Dates: start: 20081006, end: 20100319
  8. HYALURONATE SODIUM [Concomitant]
     Active Substance: HYALURONATE SODIUM
     Indication: SJOGREN^S SYNDROME
     Dosage: ??
     Route: 065
     Dates: start: 20000306, end: 20100319
  9. TOFACITINIB CITRATE [Suspect]
     Active Substance: TOFACITINIB CITRATE
     Indication: RHEUMATOID ARTHRITIS
     Dosage: 5 MG, BID
     Route: 048
     Dates: start: 20100203, end: 20100315
  10. HIRUDOID [Concomitant]
     Active Substance: GLYCOSAMINOGLYCANS
     Indication: ECZEMA
     Dosage: ??
     Route: 065
     Dates: start: 20100203, end: 20100319
  11. METHOTREXATE SODIUM. [Suspect]
     Active Substance: METHOTREXATE SODIUM
     Dosage: 5 MG, QW
     Route: 048
     Dates: start: 20060926, end: 20091005
  12. SPLENDIL ER [Concomitant]
     Indication: HYPERTENSION
     Dosage: ??
     Route: 065
     Dates: start: 20010723
  13. LENDORMIN [Concomitant]
     Active Substance: BROTIZOLAM
     Indication: INSOMNIA
     Dosage: ??
     Route: 065
     Dates: start: 20100303, end: 20100319
  14. PREDNISOLONE. [Suspect]
     Active Substance: PREDNISOLONE
     Indication: RHEUMATOID ARTHRITIS
     Dosage: 1 MG, QD
     Route: 048
     Dates: start: 20060704, end: 20100319
  15. METHOTREXATE SODIUM. [Suspect]
     Active Substance: METHOTREXATE SODIUM
     Indication: RHEUMATOID ARTHRITIS
     Dosage: 12 MG, QW
     Route: 048
     Dates: start: 20091201, end: 20100319
  16. METHOTREXATE SODIUM. [Suspect]
     Active Substance: METHOTREXATE SODIUM
     Dosage: 10 MG, QW
     Route: 048
     Dates: start: 20091006, end: 20091130
  17. SLOW K [Concomitant]
     Active Substance: POTASSIUM CHLORIDE
     Indication: HYPOKALAEMIA
     Dosage: ??
     Route: 065
     Dates: start: 20030507
  18. ALDACTONE A [Concomitant]
     Active Substance: SPIRONOLACTONE
     Indication: OEDEMA
     Dosage: ??
     Route: 065
     Dates: start: 20080519, end: 20100319

REACTIONS (4)
  - Pneumocystis jirovecii pneumonia [Not Recovered/Not Resolved]
  - Pyrexia [Recovered/Resolved]
  - Disseminated intravascular coagulation [Fatal]
  - Multiple organ dysfunction syndrome [Fatal]

NARRATIVE: CASE EVENT DATE: 20100315
